FAERS Safety Report 8858803 (Version 1)
Quarter: 2012Q4

REPORT INFORMATION
  Report Type: Spontaneous
  Country: US (occurrence: None)
  Receive Date: 20121023
  Receipt Date: 20121023
  Transmission Date: 20130627
  Serious: Yes (Disabling, Other)
  Sender: FDA-Public Use
  Company Number: None

PATIENT
  Age: 35 Year
  Sex: Female
  Weight: 124.74 kg

DRUGS (2)
  1. BUPROPION [Suspect]
     Indication: ANXIETY DEPRESSION
     Dosage: 200 mg  Twice daily  po
     Route: 048
     Dates: start: 20120601, end: 20121022
  2. BUPROPION [Suspect]
     Indication: ANXIETY DEPRESSION
     Dosage: 300 mg  Once daily  po
     Route: 048
     Dates: start: 20120508, end: 20120531

REACTIONS (16)
  - Constipation [None]
  - Agitation [None]
  - Anger [None]
  - Hostility [None]
  - Depressed mood [None]
  - Condition aggravated [None]
  - Fatigue [None]
  - Cognitive disorder [None]
  - Thyroid disorder [None]
  - Mental disorder [None]
  - Feeling abnormal [None]
  - Disturbance in attention [None]
  - Slow speech [None]
  - Speech disorder [None]
  - Anxiety [None]
  - Product substitution issue [None]
